FAERS Safety Report 6234722-7 (Version None)
Quarter: 2009Q2

REPORT INFORMATION
  Report Type: 
  Country: None (occurrence: None)
  Receive Date: 20090615
  Receipt Date: 20090427
  Transmission Date: 20091009
  Serious: No
  Sender: FDA-Public Use
  Company Number: DSA_33228_2009

PATIENT
  Sex: Female
  Weight: 108.8633 kg

DRUGS (4)
  1. XENAZINE [Suspect]
     Indication: HUNTINGTON'S CHOREA
     Dosage: 12.5 MG BID ORAL
     Route: 048
     Dates: start: 20090112, end: 20090119
  2. RISPERIDONE [Concomitant]
  3. CITALOPRAM HYDROBROMIDE [Concomitant]
  4. LORATADINE [Concomitant]

REACTIONS (1)
  - INSOMNIA [None]
